FAERS Safety Report 7616726-2 (Version None)
Quarter: 2011Q3

REPORT INFORMATION
  Report Type: 
  Country: None (occurrence: None)
  Receive Date: 20110718
  Receipt Date: 20110708
  Transmission Date: 20111222
  Serious: Yes (Hospitalization, Other)
  Sender: FDA-Public Use
  Company Number: US-BIOGENIDEC-2011BI017579

PATIENT
  Age: 56 Year
  Sex: Male

DRUGS (1)
  1. TYSABRI [Suspect]
     Indication: MULTIPLE SCLEROSIS
     Route: 042
     Dates: start: 20101230, end: 20110412

REACTIONS (8)
  - CARDIAC FAILURE CONGESTIVE [None]
  - DEHYDRATION [None]
  - CONFUSIONAL STATE [None]
  - ABASIA [None]
  - CARDIAC DISORDER [None]
  - CHEST PAIN [None]
  - FALL [None]
  - HEMIPARESIS [None]
